FAERS Safety Report 11874459 (Version 5)
Quarter: 2021Q1

REPORT INFORMATION
  Report Type: Spontaneous
  Country: ES (occurrence: ES)
  Receive Date: 20151229
  Receipt Date: 20210327
  Transmission Date: 20210419
  Serious: Yes (Hospitalization, Other)
  Sender: FDA-Public Use
  Company Number: ES-ACCORD-036570

PATIENT
  Age: 74 Year
  Sex: Female

DRUGS (24)
  1. BISOPROLOL [Interacting]
     Active Substance: BISOPROLOL
     Indication: PRODUCT USED FOR UNKNOWN INDICATION
     Dosage: 2.5 MG,QD
  2. PREDNISONE. [Interacting]
     Active Substance: PREDNISONE
     Indication: ERYTHRODERMIC PSORIASIS
     Dosage: 0.5 MG/KG, QD
     Route: 048
  3. RAMIPRIL. [Suspect]
     Active Substance: RAMIPRIL
     Indication: PRODUCT USED FOR UNKNOWN INDICATION
     Dosage: 5 MG,QD
  4. DIGOXIN. [Interacting]
     Active Substance: DIGOXIN
     Indication: PRODUCT USED FOR UNKNOWN INDICATION
  5. FOLIC ACID. [Interacting]
     Active Substance: FOLIC ACID
     Indication: PROPHYLAXIS
     Dosage: DOSAGE UNIT FREQUENCY: 5 MG?MILLIGRAMS  DOSE FOR INTAKE: 5 MGMILLIGRAMS
     Route: 065
  6. METHOTREXATE. [Interacting]
     Active Substance: METHOTREXATE
     Indication: PRODUCT USED FOR UNKNOWN INDICATION
     Dosage: NO. INTAKES PER FREQUENCY UNIT: 1 FREQUENCY UNIT:1 DAY
     Route: 065
  7. ENOXAPARIN [Interacting]
     Active Substance: ENOXAPARIN
     Indication: PRODUCT USED FOR UNKNOWN INDICATION
     Dosage: 40 MG,QD
  8. METHYLPREDNISOLONE. [Interacting]
     Active Substance: METHYLPREDNISOLONE
     Indication: ERYTHEMA
     Route: 061
  9. ALPRAZOLAM. [Concomitant]
     Active Substance: ALPRAZOLAM
     Indication: EUPHORIC MOOD
  10. HYDROCORTISONE. [Concomitant]
     Active Substance: HYDROCORTISONE
     Indication: ERYTHRODERMIC PSORIASIS
     Route: 061
  11. FUROSEMIDE. [Interacting]
     Active Substance: FUROSEMIDE
     Indication: CHRONIC KIDNEY DISEASE
     Dosage: 60 MG,QD
  12. ACENOCOUMAROL [Interacting]
     Active Substance: ACENOCOUMAROL
     Indication: PRODUCT USED FOR UNKNOWN INDICATION
  13. CLORAZEPIC ACID [Interacting]
     Active Substance: CLORAZEPIC ACID
     Indication: PRODUCT USED FOR UNKNOWN INDICATION
  14. DIGOXIN. [Interacting]
     Active Substance: DIGOXIN
     Indication: ATRIAL FIBRILLATION
     Dosage: DOSAGE UNIT FREQUENCY: 0.125 MG, DOSE FOR INTAKE: 0.125 MG, NO. INTAKES PER FREQUENCY UNIT: 1 DAY
  15. PREDNISONE. [Concomitant]
     Active Substance: PREDNISONE
     Indication: ERYTHRODERMIC PSORIASIS
     Dosage: DOSAGE UNIT FREQUENCY: 0.5 MG / KG?MILLIGRAMS / KILOGRAM, DOSE FOR?INTAKE: 0.5 MG / KG
  16. METHOTREXATE. [Interacting]
     Active Substance: METHOTREXATE
     Indication: PRODUCT USED FOR UNKNOWN INDICATION
     Dosage: 5 MG,QW
     Route: 065
  17. HYDROCHLOROTHIAZIDE. [Interacting]
     Active Substance: HYDROCHLOROTHIAZIDE
     Indication: CHRONIC KIDNEY DISEASE
     Dosage: 25 MG QD
  18. OMEPRAZOLE. [Interacting]
     Active Substance: OMEPRAZOLE
     Indication: PRODUCT USED FOR UNKNOWN INDICATION
  19. CLOBETASOL [Interacting]
     Active Substance: CLOBETASOL
     Indication: PRODUCT USED FOR UNKNOWN INDICATION
     Route: 061
  20. ALPRAZOLAM. [Interacting]
     Active Substance: ALPRAZOLAM
     Indication: DISORIENTATION
     Route: 048
  21. HYDROCORTISONE. [Interacting]
     Active Substance: HYDROCORTISONE
     Indication: ERYTHRODERMIC PSORIASIS
     Route: 061
  22. INSULIN [Concomitant]
     Active Substance: INSULIN NOS
     Dosage: UNIT (S)  NO. INTAKES PER FREQUENCY UNIT: 1 FREQUENCYUNIT: 1 DAY
     Route: 065
  23. CLORAZEPIC ACID [Concomitant]
     Active Substance: CLORAZEPIC ACID
     Dosage: DOSAGE UNIT FREQUENCY: 5 MG?MILLIGRAMS
     Route: 065
  24. DILTIAZEM. [Interacting]
     Active Substance: DILTIAZEM
     Indication: PRODUCT USED FOR UNKNOWN INDICATION
     Dosage: 120 MG,QD

REACTIONS (11)
  - Transaminases increased [Recovering/Resolving]
  - Drug interaction [Unknown]
  - Euphoric mood [Unknown]
  - Hypertransaminasaemia [Recovered/Resolved]
  - Disorientation [Unknown]
  - Somnolence [Unknown]
  - Stupor [Unknown]
  - Erythrodermic psoriasis [Recovered/Resolved]
  - Condition aggravated [Recovered/Resolved]
  - Toxicity to various agents [Unknown]
  - Erythema [Recovered/Resolved]
